FAERS Safety Report 9363076 (Version 1)
Quarter: 2013Q2

REPORT INFORMATION
  Report Type: Spontaneous
  Country: US (occurrence: US)
  Receive Date: 20130624
  Receipt Date: 20130624
  Transmission Date: 20140414
  Serious: No
  Sender: FDA-Public Use
  Company Number: US-PFIZER INC-2013186623

PATIENT
  Age: 55 Year
  Sex: Male

DRUGS (1)
  1. LYRICA [Suspect]
     Indication: MIGRAINE
     Dosage: UNK
     Dates: start: 2012, end: 201306

REACTIONS (6)
  - Off label use [Unknown]
  - Agitation [Unknown]
  - Apathy [Unknown]
  - Dyspepsia [Unknown]
  - Fatigue [Unknown]
  - Insomnia [Unknown]
